FAERS Safety Report 23442017 (Version 2)
Quarter: 2024Q1

REPORT INFORMATION
  Report Type: Report from Study
  Country: US (occurrence: ES)
  Receive Date: 20240125
  Receipt Date: 20240312
  Transmission Date: 20240410
  Serious: Yes (Death, Hospitalization)
  Sender: FDA-Public Use
  Company Number: US-KARYOPHARM-2024KPT000046

PATIENT
  Age: 91 Year
  Sex: Male

DRUGS (8)
  1. SELINEXOR [Suspect]
     Active Substance: SELINEXOR
     Indication: Plasma cell myeloma refractory
     Dosage: UNK, 2X/WEEK DAYS 1 AND 3 OF EACH WEEK
     Route: 048
     Dates: start: 20231220, end: 20231230
  2. DEXAMETHASONE [Concomitant]
     Active Substance: DEXAMETHASONE
     Indication: Plasma cell myeloma
     Dosage: 10 MG, 2X/WEEK
     Dates: start: 20231220
  3. ASPIRIN [Concomitant]
     Active Substance: ASPIRIN
     Indication: Aortic aneurysm
     Dosage: 100 MG, QD
  4. ATORVASTATIN [Concomitant]
     Active Substance: ATORVASTATIN
     Indication: Aortic aneurysm
     Dosage: 10 MG, QD
  5. REPAGLINIDE [Concomitant]
     Active Substance: REPAGLINIDE
     Indication: Type 2 diabetes mellitus
     Dosage: UNK, QD
  6. TIOTROPIUM BROMIDE [Concomitant]
     Active Substance: TIOTROPIUM BROMIDE
     Indication: Chronic obstructive pulmonary disease
     Dosage: UNK, QD
  7. BUDESONIDE\FORMOTEROL [Concomitant]
     Active Substance: BUDESONIDE\FORMOTEROL
     Indication: Chronic obstructive pulmonary disease
     Dosage: UNK, QD
  8. EPOETIN ZETA [Concomitant]
     Active Substance: ERYTHROPOIETIN
     Indication: Plasma cell myeloma
     Dosage: 40000 IU, WEEKLY

REACTIONS (12)
  - Pneumonia influenzal [Unknown]
  - Acute kidney injury [Unknown]
  - Fall [Unknown]
  - Cardiogenic shock [Unknown]
  - Acute myocardial infarction [Fatal]
  - Muscle fatigue [Unknown]
  - Hyperkalaemia [Unknown]
  - Streptococcus test positive [Unknown]
  - Hyponatraemia [Unknown]
  - Hyperglycaemia [Unknown]
  - Asthenia [Unknown]
  - Dehydration [Unknown]

NARRATIVE: CASE EVENT DATE: 20231201
